FAERS Safety Report 5225132-X (Version None)
Quarter: 2007Q1

REPORT INFORMATION
  Report Type: 
  Country: None (occurrence: None)
  Receive Date: 20070131
  Receipt Date: 20070119
  Transmission Date: 20070707
  Serious: Yes (Other)
  Sender: FDA-Public Use
  Company Number: PHBS2007BE01346

PATIENT
  Age: 83 Year
  Sex: Male

DRUGS (3)
  1. LAMISIL [Suspect]
     Indication: NAIL TINEA
     Dosage: 250 MG/D
     Route: 048
     Dates: start: 20061201
  2. RISPERDAL [Suspect]
     Dosage: 1 MG/D
     Route: 065
  3. SEROQUEL [Suspect]
     Dosage: 200 MG, QD
     Route: 065

REACTIONS (2)
  - DRUG INTERACTION [None]
  - SOMNOLENCE [None]
